FAERS Safety Report 4342860-9 (Version None)
Quarter: 2004Q2

REPORT INFORMATION
  Report Type: 
  Country: None (occurrence: None)
  Receive Date: 20040416
  Receipt Date: 20040330
  Transmission Date: 20050107
  Serious: Yes (Hospitalization)
  Sender: FDA-Public Use
  Company Number: HQWYE295831MAR04

PATIENT
  Age: 85 Year
  Sex: Female

DRUGS (3)
  1. DIAMOX [Suspect]
     Indication: CATARACT
     Dosage: 250 MG X 1 DOSE
     Route: 048
     Dates: start: 20031021
  2. TIMOLOL MALEATE [Concomitant]
  3. ASPIRIN [Concomitant]

REACTIONS (3)
  - ANAPHYLACTIC REACTION [None]
  - ANGIONEUROTIC OEDEMA [None]
  - TONGUE OEDEMA [None]
